FAERS Safety Report 11225771 (Version 1)
Quarter: 2015Q2

REPORT INFORMATION
  Report Type: Spontaneous
  Country: DK (occurrence: DK)
  Receive Date: 20150629
  Receipt Date: 20150629
  Transmission Date: 20150821
  Serious: Yes (Hospitalization)
  Sender: FDA-Public Use
  Company Number: DK-TEVA-574030ISR

PATIENT
  Age: 92 Year
  Sex: Female

DRUGS (7)
  1. DIGOXIN ^DAK^ [Concomitant]
     Indication: ATRIAL FIBRILLATION
     Dosage: DOSAGE: 125 MICROG.
     Route: 048
     Dates: end: 20150611
  2. KALEORID [Concomitant]
     Active Substance: POTASSIUM CHLORIDE
     Indication: MINERAL SUPPLEMENTATION
     Dosage: DOSAGE: 750 MG. MODIFIED-RELEASE TABLET.
     Route: 048
     Dates: end: 20150611
  3. CARVEDILOL ^TEVA^ [Concomitant]
     Indication: HYPERTENSION
     Dosage: DOSAGE: 6,25 MG.
     Route: 048
  4. FURIX [Suspect]
     Active Substance: FUROSEMIDE
     Indication: HYPERTENSION
     Dosage: DOSAGE: 40 MG.
     Route: 048
     Dates: end: 20150611
  5. ELIQUIS [Concomitant]
     Active Substance: APIXABAN
     Indication: THROMBOSIS PROPHYLAXIS
     Dosage: DOSAGE: 2,5 MG.
     Route: 048
     Dates: start: 201412, end: 20150611
  6. RAMIPRIL ^TEVA^ [Suspect]
     Active Substance: RAMIPRIL
     Indication: HYPERTENSION
     Dosage: 5 MILLIGRAM DAILY; DOSAGE: 2,5 MG.
     Route: 048
  7. BRUFEN [Concomitant]
     Active Substance: IBUPROFEN
     Indication: PAIN
     Dosage: DOSAGE: 400 MG.
     Route: 048
     Dates: start: 20150501, end: 20150611

REACTIONS (2)
  - Dehydration [Recovering/Resolving]
  - Renal failure [Recovering/Resolving]

NARRATIVE: CASE EVENT DATE: 201506
